FAERS Safety Report 4974612-0 (Version None)
Quarter: 2006Q1

REPORT INFORMATION
  Report Type: 
  Country: None (occurrence: None)
  Receive Date: 20060227
  Receipt Date: 20051215
  Transmission Date: 20060701
  Serious: No
  Sender: FDA-Public Use
  Company Number: PHEH2005US13552

PATIENT
  Sex: 0

DRUGS (2)
  1. ENABLEX [Suspect]
  2. MOBIC [Suspect]

REACTIONS (1)
  - RASH [None]
